FAERS Safety Report 24651535 (Version 1)
Quarter: 2024Q4

REPORT INFORMATION
  Report Type: Spontaneous
  Country: US (occurrence: US)
  Receive Date: 20241122
  Receipt Date: 20241122
  Transmission Date: 20250115
  Serious: Yes (Life-Threatening, Hospitalization, Other)
  Sender: ALKEM
  Company Number: US-ALKEM LABORATORIES LIMITED-US-ALKEM-2024-24659

PATIENT
  Age: 62 Year
  Sex: Male

DRUGS (4)
  1. TRIAMCINOLONE ACETONIDE [Suspect]
     Active Substance: TRIAMCINOLONE ACETONIDE
     Indication: Osteoarthritis
     Dosage: UNK (INJECTION)
     Route: 014
  2. CARBOXYMETHYLCELLULOSE [Suspect]
     Active Substance: CARBOXYMETHYLCELLULOSE
     Indication: Osteoarthritis
     Dosage: UNK
     Route: 051
  3. CARBOXYMETHYLCELLULOSE [Suspect]
     Active Substance: CARBOXYMETHYLCELLULOSE
     Dosage: UNK (CHALLENGE DOSE)
     Route: 048
  4. LIDOCAINE [Concomitant]
     Active Substance: LIDOCAINE
     Indication: Osteoarthritis
     Dosage: UNK (INJECTION)
     Route: 014

REACTIONS (1)
  - Type I hypersensitivity [Unknown]
